FAERS Safety Report 7554531-6 (Version None)
Quarter: 2011Q2

REPORT INFORMATION
  Report Type: 
  Country: None (occurrence: None)
  Receive Date: 20110617
  Receipt Date: 20110607
  Transmission Date: 20111010
  Serious: Yes (Other)
  Sender: FDA-Public Use
  Company Number: B0726644A

PATIENT
  Age: 75 Year
  Sex: Male

DRUGS (1)
  1. CEFTAZIDIME [Suspect]
     Route: 065
     Dates: start: 20110603, end: 20110604

REACTIONS (1)
  - ERYTHEMA MULTIFORME [None]
